FAERS Safety Report 9537745 (Version 1)
Quarter: 2013Q3

REPORT INFORMATION
  Report Type: Report from Study
  Country: DE (occurrence: DE)
  Receive Date: 20130919
  Receipt Date: 20130919
  Transmission Date: 20140515
  Serious: Yes (Hospitalization)
  Sender: FDA-Public Use
  Company Number: DE-ABBVIE-13P-062-1148382-00

PATIENT
  Age: 48 Year
  Sex: Male
  Weight: 138 kg

DRUGS (11)
  1. ZEMPLAR [Suspect]
     Indication: HYPERPARATHYROIDISM SECONDARY
  2. ALLOPURINOL [Concomitant]
     Indication: PRODUCT USED FOR UNKNOWN INDICATION
  3. PLAVIX [Concomitant]
     Indication: PRODUCT USED FOR UNKNOWN INDICATION
  4. RAMIPRIL [Concomitant]
     Indication: PRODUCT USED FOR UNKNOWN INDICATION
  5. CARVEDIOL [Concomitant]
     Indication: PRODUCT USED FOR UNKNOWN INDICATION
  6. FUORESE [Concomitant]
     Indication: PRODUCT USED FOR UNKNOWN INDICATION
  7. BONDIOL [Concomitant]
     Indication: PRODUCT USED FOR UNKNOWN INDICATION
  8. AMLODIPIN [Concomitant]
     Indication: PRODUCT USED FOR UNKNOWN INDICATION
  9. NEPHROTRANS [Concomitant]
     Indication: PRODUCT USED FOR UNKNOWN INDICATION
  10. DEKRISTOL [Concomitant]
     Indication: PRODUCT USED FOR UNKNOWN INDICATION
  11. SIMVAHEXAL [Concomitant]
     Indication: PRODUCT USED FOR UNKNOWN INDICATION

REACTIONS (4)
  - Device malfunction [Recovered/Resolved]
  - Shunt occlusion [Recovered/Resolved]
  - Shunt malfunction [Recovered/Resolved]
  - Shunt malfunction [Recovered/Resolved]
